FAERS Safety Report 9449219 (Version 1)
Quarter: 2013Q3

REPORT INFORMATION
  Report Type: Spontaneous
  Country: GB (occurrence: GB)
  Receive Date: 20130808
  Receipt Date: 20130808
  Transmission Date: 20140515
  Serious: Yes (Life-Threatening, Hospitalization, Disabling, Other)
  Sender: FDA-Public Use
  Company Number: GB-WATSON-2013-14045

PATIENT
  Sex: Male

DRUGS (5)
  1. OLANZAPINE (UNKNOWN) [Suspect]
     Indication: PRODUCT USED FOR UNKNOWN INDICATION
     Dosage: UNK, UNKNOWN
     Route: 048
     Dates: start: 20020304, end: 20090110
  2. NITRAZEPAM [Suspect]
     Indication: INSOMNIA RELATED TO ANOTHER MENTAL CONDITION
     Dosage: 20 MG, UNK
     Route: 048
     Dates: start: 20080708, end: 20080708
  3. ZOLPIDEM TARTRATE (UNKNOWN) [Suspect]
     Indication: INSOMNIA RELATED TO ANOTHER MENTAL CONDITION
     Dosage: 40 MG
     Route: 048
     Dates: start: 20061004, end: 20070504
  4. CITALOPRAM HYDROBROMIDE [Suspect]
     Indication: PRODUCT USED FOR UNKNOWN INDICATION
     Dosage: 40 MG, UNKNOWN
     Route: 048
     Dates: start: 20100508, end: 20100508
  5. MORPHINE [Concomitant]
     Indication: PRODUCT USED FOR UNKNOWN INDICATION
     Route: 065

REACTIONS (2)
  - Urinary incontinence [Unknown]
  - Diabetes mellitus [Unknown]
